FAERS Safety Report 4845334-1 (Version None)
Quarter: 2005Q4

REPORT INFORMATION
  Report Type: 
  Country: None (occurrence: None)
  Receive Date: 20051205
  Receipt Date: 20051129
  Transmission Date: 20060501
  Serious: Yes (Other)
  Sender: FDA-Public Use
  Company Number: GB-GLAXOSMITHKLINE-B0402151A

PATIENT
  Age: 58 Year
  Sex: Female
  Weight: 62.5 kg

DRUGS (7)
  1. PAROXETINE HYDROCHLORIDE [Suspect]
     Indication: DEPRESSION
     Dosage: 1UNIT PER DAY
     Route: 048
     Dates: start: 20050818, end: 20051118
  2. ESTRADIOL INJ [Concomitant]
     Route: 065
     Dates: start: 20051027
  3. DIAZEPAM [Concomitant]
     Dosage: 1UNIT THREE TIMES PER DAY
     Route: 065
     Dates: start: 20051102
  4. FUSIDIC ACID [Concomitant]
     Dosage: 1DROP TWICE PER DAY
     Route: 065
     Dates: start: 20051102, end: 20051109
  5. LISINOPRIL [Concomitant]
     Dosage: 1UNIT PER DAY
     Route: 065
     Dates: start: 20011204
  6. ATORVASTATIN [Concomitant]
     Dosage: 1UNIT PER DAY
     Route: 065
     Dates: start: 20040311
  7. CHLORAMPHENICOL [Concomitant]
     Dosage: 2UNIT FOUR TIMES PER DAY
     Route: 065
     Dates: end: 20051018

REACTIONS (2)
  - LETHARGY [None]
  - SINUS BRADYCARDIA [None]
